FAERS Safety Report 24890361 (Version 2)
Quarter: 2025Q1

REPORT INFORMATION
  Report Type: Spontaneous
  Country: US (occurrence: US)
  Receive Date: 20250127
  Receipt Date: 20250131
  Transmission Date: 20250408
  Serious: Yes (Life-Threatening, Disabling, Other)
  Sender: PFIZER
  Company Number: US-MLMSERVICE-20250115-PI338236-00312-1

PATIENT
  Age: 55 Year
  Sex: Male

DRUGS (1)
  1. TESTOSTERONE CYPIONATE [Suspect]
     Active Substance: TESTOSTERONE CYPIONATE
     Route: 030

REACTIONS (7)
  - Spinal cord haemorrhage [Recovering/Resolving]
  - Spinal cord oedema [Recovering/Resolving]
  - Thrombocytosis [Unknown]
  - Antithrombin III increased [Unknown]
  - Paraplegia [Recovering/Resolving]
  - Spinal cord injury cervical [Recovering/Resolving]
  - Spinal cord injury thoracic [Recovering/Resolving]
